FAERS Safety Report 6453221-0 (Version None)
Quarter: 2009Q4

REPORT INFORMATION
  Report Type: 
  Country: None (occurrence: None)
  Receive Date: 20091124
  Receipt Date: 20091117
  Transmission Date: 20100525
  Serious: Yes (Hospitalization)
  Sender: FDA-Public Use
  Company Number: US-AMGEN-QUU373343

PATIENT
  Sex: Female

DRUGS (3)
  1. ENBREL [Suspect]
     Indication: RHEUMATOID ARTHRITIS
     Route: 058
     Dates: start: 20010501
  2. ENBREL [Suspect]
     Indication: OSTEOARTHRITIS
  3. LEFLUNOMIDE [Concomitant]
     Dates: start: 20090801

REACTIONS (4)
  - KNEE ARTHROPLASTY [None]
  - STOMATITIS [None]
  - THERAPEUTIC RESPONSE DECREASED [None]
  - TOOTH LOSS [None]
